FAERS Safety Report 14472209 (Version 1)
Quarter: 2018Q1

REPORT INFORMATION
  Report Type: Spontaneous
  Country: US (occurrence: US)
  Receive Date: 20180131
  Receipt Date: 20180131
  Transmission Date: 20180509
  Serious: Yes (Hospitalization, Other)
  Sender: FDA-Public Use
  Company Number: US-MYLANLABS-2018M1006307

PATIENT
  Age: 46 Year
  Sex: Female

DRUGS (2)
  1. ONDANSETRON [Suspect]
     Active Substance: ONDANSETRON
     Indication: PRODUCT USED FOR UNKNOWN INDICATION
     Dosage: 4MG
     Route: 042
  2. HYDROXYCHLOROQUINE [Interacting]
     Active Substance: HYDROXYCHLOROQUINE
     Indication: PRODUCT USED FOR UNKNOWN INDICATION
     Dosage: FOUR 200 MG TABLETS
     Route: 048

REACTIONS (9)
  - Ventricular tachycardia [Recovered/Resolved]
  - Hypokalaemia [Unknown]
  - Ventricular arrhythmia [Recovered/Resolved]
  - Hypotension [Not Recovered/Not Resolved]
  - Sinus tachycardia [Recovered/Resolved]
  - Drug interaction [Recovering/Resolving]
  - Toxicity to various agents [Recovering/Resolving]
  - Torsade de pointes [Recovered/Resolved]
  - Electrocardiogram QT prolonged [Unknown]
